FAERS Safety Report 8900171 (Version 2)
Quarter: 2012Q4

REPORT INFORMATION
  Report Type: 
  Country: NL (occurrence: NL)
  Receive Date: 20121109
  Receipt Date: 20121129
  Transmission Date: 20130627
  Serious: Yes (Hospitalization, Other)
  Sender: FDA-Public Use
  Company Number: PHHY2012NL102665

PATIENT
  Age: 77 Year
  Sex: Male

DRUGS (10)
  1. ZOMETA [Suspect]
     Indication: PROSTATE CANCER METASTATIC
     Dosage: 4 mg/100 ml once per month
     Dates: start: 201209
  2. ZOMETA [Suspect]
     Dosage: 4 mg/100 ml once every 28 days
     Dates: start: 20121009
  3. ZOMETA [Suspect]
     Dosage: 4 mg/100 ml once every 28 days
     Dates: start: 20121107
  4. SOTALOL [Concomitant]
     Dosage: 40 mg, BID
  5. CARBASALATE CALCIUM [Concomitant]
     Dosage: 100 mg, QD
  6. ZOLADEX [Concomitant]
     Dosage: UNK UKN, UNK
  7. OMNIC [Concomitant]
     Dosage: UNK UKN, UNK
  8. ASCAL [Concomitant]
     Dosage: UNK UKN, UNK
  9. PROTON PUMP INHIBITORS [Concomitant]
     Dosage: UNK UKN, UNK
  10. VITAMIN D [Concomitant]
     Dosage: UNK UKN, UNK

REACTIONS (5)
  - Loss of consciousness [Recovered/Resolved]
  - Syncope [Recovered/Resolved]
  - Circulatory collapse [Unknown]
  - Blood pressure decreased [Recovered/Resolved]
  - Malignant neoplasm progression [Unknown]
